FAERS Safety Report 6389178-0 (Version None)
Quarter: 2009Q4

REPORT INFORMATION
  Report Type: 
  Country: None (occurrence: None)
  Receive Date: 20091006
  Receipt Date: 20070523
  Transmission Date: 20100525
  Serious: Yes (Other)
  Sender: FDA-Public Use
  Company Number: US-ASTRAZENECA-2006UW26452

PATIENT
  Age: 42 Year
  Sex: Female
  Weight: 102.7 kg

DRUGS (23)
  1. SEROQUEL [Suspect]
     Indication: BIPOLAR I DISORDER
     Dosage: 50 MG TO 100 MG
     Route: 048
     Dates: start: 19990316
  2. SEROQUEL [Suspect]
     Indication: DEPRESSION
     Dosage: 50 MG TO 100 MG
     Route: 048
     Dates: start: 19990316
  3. SEROQUEL [Suspect]
     Dosage: 100 MG AND 300 MG. 400 MG EVERY DAY
     Route: 048
     Dates: start: 20000101
  4. SEROQUEL [Suspect]
     Dosage: 100 MG AND 300 MG. 400 MG EVERY DAY
     Route: 048
     Dates: start: 20000101
  5. GEODON [Concomitant]
     Route: 048
  6. RISPERDAL [Concomitant]
     Route: 048
  7. DEPAKOTE [Concomitant]
     Dosage: 1500 MG TO 2000 MG
     Dates: start: 19990316
  8. WELLBUTRIN SR [Concomitant]
     Dates: start: 19990316
  9. AMARYL [Concomitant]
     Indication: TYPE 2 DIABETES MELLITUS
     Dosage: 1 MG TO 6 MG
     Dates: start: 20000928
  10. TOPAMAX [Concomitant]
     Dates: start: 20060602
  11. ABILIFY [Concomitant]
     Dates: start: 20060602
  12. ABILIFY [Concomitant]
     Route: 048
  13. BENADRYL [Concomitant]
     Dates: start: 20060602
  14. LYRICA [Concomitant]
     Indication: DIABETIC NEUROPATHY
     Dates: start: 20060602
  15. LIPITOR [Concomitant]
     Indication: HYPERLIPIDAEMIA
  16. GLUCOPHAGE [Concomitant]
     Indication: TYPE 2 DIABETES MELLITUS
     Route: 048
     Dates: start: 20060602
  17. LANTUS [Concomitant]
     Indication: TYPE 2 DIABETES MELLITUS
     Dosage: 50 UNITS TO 94 UNITS
     Dates: start: 20060602
  18. KEFLEX [Concomitant]
     Indication: PROPHYLAXIS URINARY TRACT INFECTION
     Dates: start: 20060602
  19. ZOLOFT [Concomitant]
     Indication: DEPRESSION
     Dates: start: 20000114
  20. LITHIUM [Concomitant]
     Dates: start: 20000114
  21. KLONOPIN [Concomitant]
     Dates: start: 20000114
  22. ATIVAN [Concomitant]
     Dates: start: 20000114
  23. EFFEXOR XR [Concomitant]
     Indication: DEPRESSION
     Dates: start: 20000114

REACTIONS (4)
  - DIABETES MELLITUS [None]
  - DIABETES MELLITUS INADEQUATE CONTROL [None]
  - DIABETIC NEUROPATHY [None]
  - TYPE 2 DIABETES MELLITUS [None]
